FAERS Safety Report 24021082 (Version 1)
Quarter: 2024Q2

REPORT INFORMATION
  Report Type: Spontaneous
  Country: US (occurrence: US)
  Receive Date: 20240627
  Receipt Date: 20240627
  Transmission Date: 20240716
  Serious: No
  Sender: FDA-Public Use
  Company Number: US-THERATECHNOLOGIES INC.-2024-THE-IBA-000136

PATIENT

DRUGS (2)
  1. TROGARZO [Suspect]
     Active Substance: IBALIZUMAB-UIYK
     Indication: HIV infection
     Dosage: 2000 MG (LOADING DOSE)
     Route: 065
     Dates: start: 2022, end: 2022
  2. TROGARZO [Suspect]
     Active Substance: IBALIZUMAB-UIYK
     Dosage: 800 MG, BIWEEKLY (MAINTENANCE DOSE)
     Route: 065
     Dates: start: 2022

REACTIONS (1)
  - Blood pressure abnormal [Not Recovered/Not Resolved]
